FAERS Safety Report 10412261 (Version 1)
Quarter: 2014Q2

REPORT INFORMATION
  Report Type: Spontaneous
  Country: US (occurrence: None)
  Receive Date: 20140604
  Receipt Date: 20140604
  Transmission Date: 20141212
  Serious: Yes (Other)
  Sender: FDA-Public Use
  Company Number: 20100326CINRY1425

PATIENT
  Age: 47 Year
  Sex: Female

DRUGS (15)
  1. CINRYZE [Suspect]
     Indication: HEREDITARY ANGIOEDEMA
     Route: 042
     Dates: start: 20100325
  2. CINRYZE [Suspect]
     Indication: PROPHYLAXIS
     Route: 042
     Dates: start: 20100325
  3. SOMA (CARISOPRODOL) [Concomitant]
  4. CLONIDINE (CLONIDINE) [Concomitant]
  5. MOBIC (MELOXICAM) [Concomitant]
  6. METFORMIN (METFORMIN) [Concomitant]
  7. TOPROL (METOPROLOL SUCCINATE) [Concomitant]
  8. BENTYL (DICYCLOVERINE HYDROCHLORIDE) [Concomitant]
  9. SULFASALAZINE (SULFASALAZINE) [Concomitant]
  10. LYRICA (PREGABALIN) [Concomitant]
  11. HUMIRA (ADALIMUMAB) [Concomitant]
  12. ALDACTONE (SPIRONOLACTONE) [Concomitant]
  13. PAXIL CR (PAROXETINE HYDROCHLORIDE) [Concomitant]
  14. MORPHINE (MORPHINE) [Concomitant]
  15. LIDODERM (LIDOCAINE) [Concomitant]

REACTIONS (1)
  - Hereditary angioedema [None]
